FAERS Safety Report 22649965 (Version 1)
Quarter: 2023Q2

REPORT INFORMATION
  Report Type: Spontaneous
  Country: US (occurrence: US)
  Receive Date: 20230628
  Receipt Date: 20230628
  Transmission Date: 20230721
  Serious: No
  Sender: FDA-Public Use
  Company Number: US-BAYER-2023A089034

PATIENT
  Age: 71 Year
  Sex: Male

DRUGS (6)
  1. CLARITIN [Suspect]
     Active Substance: LORATADINE
     Dosage: UNK
     Route: 048
     Dates: start: 202305
  2. KRYSTEXXA [Suspect]
     Active Substance: PEGLOTICASE
     Dosage: FIRST INFUSION
     Route: 042
     Dates: start: 20230503
  3. KRYSTEXXA [Suspect]
     Active Substance: PEGLOTICASE
     Dosage: SECOND INFUSION
     Route: 042
     Dates: start: 20230517
  4. KRYSTEXXA [Suspect]
     Active Substance: PEGLOTICASE
     Dosage: THIRD INFUSION
     Route: 042
     Dates: start: 20230517
  5. KRYSTEXXA [Suspect]
     Active Substance: PEGLOTICASE
     Dosage: FOURTH INFUSION
     Route: 042
     Dates: start: 20230614
  6. DIPHENHYDRAMINE HYDROCHLORIDE [Suspect]
     Active Substance: DIPHENHYDRAMINE HYDROCHLORIDE
     Dosage: UNK

REACTIONS (3)
  - Gout [Unknown]
  - Formication [Recovered/Resolved]
  - Anxiety [None]

NARRATIVE: CASE EVENT DATE: 20230501
